FAERS Safety Report 25567083 (Version 1)
Quarter: 2025Q3

REPORT INFORMATION
  Report Type: Report from Study
  Country: CA (occurrence: CA)
  Receive Date: 20250716
  Receipt Date: 20250716
  Transmission Date: 20251021
  Serious: Yes (Other)
  Sender: SANDOZ
  Company Number: CA-002147023-NVSC2022CA114775

PATIENT
  Sex: Female

DRUGS (1)
  1. HYRIMOZ [Suspect]
     Active Substance: ADALIMUMAB-ADAZ
     Indication: Ankylosing spondylitis
     Dosage: 40 MG, Q2W
     Route: 058
     Dates: start: 20220122

REACTIONS (9)
  - Ovarian mass [Unknown]
  - SARS-CoV-2 test positive [Unknown]
  - Infection [Unknown]
  - General physical health deterioration [Unknown]
  - Muscle tightness [Unknown]
  - Influenza [Recovering/Resolving]
  - Hypoaesthesia [Unknown]
  - Fatigue [Unknown]
  - Product dose omission issue [Unknown]
